FAERS Safety Report 13249138 (Version 1)
Quarter: 2017Q1

REPORT INFORMATION
  Report Type: Spontaneous
  Country: US (occurrence: US)
  Receive Date: 20170218
  Receipt Date: 20170218
  Transmission Date: 20170428
  Serious: No
  Sender: FDA-Public Use
  Company Number: US-ALLERGAN-1653627US

PATIENT
  Age: 62 Year
  Sex: Male
  Weight: 63.49 kg

DRUGS (3)
  1. DETROL [Concomitant]
     Active Substance: TOLTERODINE TARTRATE
     Indication: MULTIPLE SCLEROSIS
     Dosage: 2 MG, UNK
     Dates: start: 1996
  2. ZYRTEC [Concomitant]
     Active Substance: CETIRIZINE HYDROCHLORIDE
     Indication: HYPERSENSITIVITY
     Dosage: UNK UNK, QD
     Dates: start: 2015
  3. RESTASIS [Suspect]
     Active Substance: CYCLOSPORINE
     Indication: DRY EYE
     Dosage: 2 GTT, BID
     Route: 047
     Dates: start: 201510

REACTIONS (1)
  - Dry eye [Not Recovered/Not Resolved]

NARRATIVE: CASE EVENT DATE: 201603
